FAERS Safety Report 5608442-3 (Version None)
Quarter: 2008Q1

REPORT INFORMATION
  Report Type: 
  Country: None (occurrence: None)
  Receive Date: 20080125
  Receipt Date: 20080116
  Transmission Date: 20080703
  Serious: Yes (Hospitalization)
  Sender: FDA-Public Use
  Company Number: 2007337713

PATIENT
  Age: 30 Year
  Sex: Male
  Weight: 99.8 kg

DRUGS (1)
  1. SUDAFED PE SEVERE COLD CAPLET (DIPHENHYDRAMINE, PHENYLEPHRINE) [Suspect]
     Indication: INFLUENZA
     Dosage: 2 CAPLETS, ONCE, ORAL
     Route: 048
     Dates: start: 20071212, end: 20071212

REACTIONS (5)
  - DYSPNOEA [None]
  - FATIGUE [None]
  - JOINT SWELLING [None]
  - OEDEMA PERIPHERAL [None]
  - URTICARIA [None]
